FAERS Safety Report 10153197 (Version 2)
Quarter: 2014Q2

REPORT INFORMATION
  Report Type: Spontaneous
  Country: US (occurrence: US)
  Receive Date: 20140505
  Receipt Date: 20140630
  Transmission Date: 20141212
  Serious: Yes (Other)
  Sender: FDA-Public Use
  Company Number: US-BAYER-2014-062673

PATIENT
  Age: 79 Year
  Sex: Female
  Weight: 80 kg

DRUGS (3)
  1. ALEVE CAPLET [Suspect]
     Indication: ARTHRALGIA
     Dosage: 2 TO 4 DF, QD
     Route: 048
  2. ASPIRIN [Concomitant]
     Dosage: 1 DF, QD
     Route: 048
     Dates: start: 2012
  3. SIMVASTATIN [Concomitant]

REACTIONS (4)
  - Thrombosis [Not Recovered/Not Resolved]
  - Off label use [None]
  - Pituitary tumour [None]
  - Incorrect drug administration duration [None]
